FAERS Safety Report 8168015-8 (Version None)
Quarter: 2012Q1

REPORT INFORMATION
  Report Type: 
  Country: None (occurrence: None)
  Receive Date: 20120227
  Receipt Date: 20120212
  Transmission Date: 20120608
  Serious: Yes (Other)
  Sender: FDA-Public Use
  Company Number: PHHY2012US014109

PATIENT
  Age: 74 Year
  Sex: Male

DRUGS (4)
  1. OCTREOTIDE ACETATE [Suspect]
     Indication: CARCINOID TUMOUR
     Dosage: UNK UKN, UNK
     Dates: start: 20080101
  2. OPIOIDS [Concomitant]
     Indication: SPINAL COLUMN STENOSIS
  3. H AND H2 BLOCKERS [Concomitant]
  4. KETOTIFEN FUMARATE [Concomitant]

REACTIONS (4)
  - SKIN FIBROSIS [None]
  - MASTOCYTOSIS [None]
  - LICHENOID KERATOSIS [None]
  - MECHANICAL URTICARIA [None]
